FAERS Safety Report 8593863-X (Version None)
Quarter: 2012Q3

REPORT INFORMATION
  Report Type: 
  Country: None (occurrence: None)
  Receive Date: 20120814
  Receipt Date: 20120803
  Transmission Date: 20120928
  Serious: Yes (Other)
  Sender: FDA-Public Use
  Company Number: US-ELI_LILLY_AND_COMPANY-US201208001797

PATIENT

DRUGS (1)
  1. FORTEO [Suspect]

REACTIONS (1)
  - LUNG NEOPLASM MALIGNANT [None]
